FAERS Safety Report 9334488 (Version 1)
Quarter: 2013Q2

REPORT INFORMATION
  Report Type: Spontaneous
  Country: US (occurrence: US)
  Receive Date: 20130606
  Receipt Date: 20130606
  Transmission Date: 20140414
  Serious: No
  Sender: FDA-Public Use
  Company Number: US-AMGEN-USASP2013027280

PATIENT
  Age: 83 Year
  Sex: Female

DRUGS (10)
  1. PROLIA [Suspect]
     Indication: OSTEOPOROSIS POSTMENOPAUSAL
     Dosage: 60 MG, Q6MO
     Dates: start: 2010
  2. SENSIPAR [Suspect]
     Indication: HYPERPARATHYROIDISM PRIMARY
     Dosage: 30 MG, Q6MO
     Dates: start: 201010
  3. SIMVASTATIN [Concomitant]
  4. DIOVAN [Concomitant]
  5. NAMENDA [Concomitant]
  6. SEROQUEL [Concomitant]
  7. LEXAPRO [Concomitant]
  8. NORVASC [Concomitant]
  9. VITAMIN D3 [Concomitant]
  10. EXELON                             /01383201/ [Concomitant]
     Dosage: 9.5 MG, UNK

REACTIONS (4)
  - Tooth disorder [Unknown]
  - Back pain [Unknown]
  - Mobility decreased [Unknown]
  - Muscle spasms [Unknown]
